FAERS Safety Report 25476577 (Version 1)
Quarter: 2025Q2

REPORT INFORMATION
  Report Type: Spontaneous
  Country: CA (occurrence: CA)
  Receive Date: 20250625
  Receipt Date: 20250625
  Transmission Date: 20250716
  Serious: Yes (Congenital Anomaly)
  Sender: SANOFI AVENTIS
  Company Number: CA-SA-2025SA176455

PATIENT
  Sex: Female

DRUGS (74)
  1. ARAVA [Suspect]
     Active Substance: LEFLUNOMIDE
  2. HYDROXYCHLOROQUINE [Suspect]
     Active Substance: HYDROXYCHLOROQUINE
  3. HYDROXYCHLOROQUINE SULFATE [Suspect]
     Active Substance: HYDROXYCHLOROQUINE SULFATE
  4. ACETAMINOPHEN [Suspect]
     Active Substance: ACETAMINOPHEN
  5. ACETAMINOPHEN\CODEINE PHOSPHATE [Suspect]
     Active Substance: ACETAMINOPHEN\CODEINE PHOSPHATE
  6. ALENDRONATE SODIUM [Suspect]
     Active Substance: ALENDRONATE SODIUM
     Route: 065
  7. ALENDRONIC ACID [Suspect]
     Active Substance: ALENDRONIC ACID
     Route: 048
  8. LEFLUNOMIDE [Suspect]
     Active Substance: LEFLUNOMIDE
  9. PREDNISONE [Suspect]
     Active Substance: PREDNISONE
  10. ATOMOXETINE HYDROCHLORIDE [Suspect]
     Active Substance: ATOMOXETINE HYDROCHLORIDE
  11. BUPRENORPHINE [Suspect]
     Active Substance: BUPRENORPHINE
  12. CANDESARTAN [Suspect]
     Active Substance: CANDESARTAN
  13. CELECOXIB [Suspect]
     Active Substance: CELECOXIB
  14. LAMOTRIGINE [Suspect]
     Active Substance: LAMOTRIGINE
  15. CETIRIZINE HYDROCHLORIDE [Suspect]
     Active Substance: CETIRIZINE HYDROCHLORIDE
  16. DICLOFENAC [Suspect]
     Active Substance: DICLOFENAC
  17. DICLOFENAC POTASSIUM [Suspect]
     Active Substance: DICLOFENAC POTASSIUM
  18. DICLOFENAC SODIUM [Suspect]
     Active Substance: DICLOFENAC SODIUM
  19. DESOXIMETASONE [Suspect]
     Active Substance: DESOXIMETASONE
  20. SULFASALAZINE [Suspect]
     Active Substance: SULFASALAZINE
  21. TOPIRAMATE [Suspect]
     Active Substance: TOPIRAMATE
  22. DOMPERIDONE MALEATE [Suspect]
     Active Substance: DOMPERIDONE MALEATE
  23. CORTISONE ACETATE [Suspect]
     Active Substance: CORTISONE ACETATE
  24. RAMIPRIL [Suspect]
     Active Substance: RAMIPRIL
  25. METHOTREXATE [Suspect]
     Active Substance: METHOTREXATE
  26. METFORMIN HYDROCHLORIDE\SITAGLIPTIN PHOSPHATE [Suspect]
     Active Substance: METFORMIN HYDROCHLORIDE\SITAGLIPTIN PHOSPHATE
  27. OXYCODONE [Suspect]
     Active Substance: OXYCODONE
  28. PSEUDOEPHEDRINE HYDROCHLORIDE [Suspect]
     Active Substance: PSEUDOEPHEDRINE HYDROCHLORIDE
  29. NAPROXEN [Suspect]
     Active Substance: NAPROXEN
  30. NAPROXEN SODIUM [Suspect]
     Active Substance: NAPROXEN SODIUM
  31. HYDROCORTISONE [Suspect]
     Active Substance: HYDROCORTISONE
  32. MYOCHRYSINE [Suspect]
     Active Substance: GOLD SODIUM THIOMALATE
     Route: 030
  33. MINOCYCLINE HYDROCHLORIDE [Suspect]
     Active Substance: MINOCYCLINE HYDROCHLORIDE
  34. AZATHIOPRINE [Suspect]
     Active Substance: AZATHIOPRINE
  35. BERINERT [Suspect]
     Active Substance: HUMAN C1-ESTERASE INHIBITOR
  36. MYRBETRIQ [Suspect]
     Active Substance: MIRABEGRON
  37. ADALIMUMAB [Suspect]
     Active Substance: ADALIMUMAB
     Route: 058
  38. BOTULINUM TOXIN TYPE A [Suspect]
     Active Substance: BOTULINUM TOXIN TYPE A
     Route: 030
  39. CHOLECALCIFEROL [Suspect]
     Active Substance: CHOLECALCIFEROL
  40. CALCIUM CITRATE [Suspect]
     Active Substance: CALCIUM CITRATE
  41. CALCIUM GLUBIONATE [Suspect]
     Active Substance: CALCIUM GLUBIONATE
  42. ACTEMRA [Suspect]
     Active Substance: TOCILIZUMAB
  43. CALCIUM ASCORBATE [Suspect]
     Active Substance: CALCIUM ASCORBATE
  44. AIMOVIG [Suspect]
     Active Substance: ERENUMAB-AOOE
  45. CHLORHEXIDINE GLUCONATE\ISOPROPYL ALCOHOL [Suspect]
     Active Substance: CHLORHEXIDINE GLUCONATE\ISOPROPYL ALCOHOL
  46. CIMZIA [Suspect]
     Active Substance: CERTOLIZUMAB PEGOL
     Route: 058
  47. ZINC [Suspect]
     Active Substance: ZINC
  48. COSENTYX [Suspect]
     Active Substance: SECUKINUMAB
  49. ENBREL [Suspect]
     Active Substance: ETANERCEPT
  50. ERGOCALCIFEROL [Suspect]
     Active Substance: ERGOCALCIFEROL
  51. FLUMETHASONE [Suspect]
     Active Substance: FLUMETHASONE
  52. FOLIC ACID [Suspect]
     Active Substance: FOLIC ACID
  53. FOSAMAX [Suspect]
     Active Substance: ALENDRONATE SODIUM
  54. HAIR KERATIN AMINO ACIDS GOLD COMPLEX [Suspect]
     Active Substance: HAIR KERATIN AMINO ACIDS GOLD COMPLEX
  55. GOLD SODIUM THIOMALATE [Suspect]
     Active Substance: GOLD SODIUM THIOMALATE
     Route: 030
  56. HUMIRA [Suspect]
     Active Substance: ADALIMUMAB
     Route: 058
  57. HYDROCORTISONE PROBUTATE [Suspect]
     Active Substance: HYDROCORTISONE PROBUTATE
  58. INFLIXIMAB [Suspect]
     Active Substance: INFLIXIMAB
  59. ISOPROPYL ALCOHOL [Suspect]
     Active Substance: ISOPROPYL ALCOHOL
     Route: 061
  60. FLUMETHASONE PIVALATE [Suspect]
     Active Substance: FLUMETHASONE PIVALATE
  61. MAGNESIUM CITRATE [Suspect]
     Active Substance: MAGNESIUM CITRATE
  62. METHYLPREDNISOLONE [Suspect]
     Active Substance: METHYLPREDNISOLONE
  63. METHYLPREDNISOLONE SODIUM SUCCINATE [Suspect]
     Active Substance: METHYLPREDNISOLONE SODIUM SUCCINATE
  64. NICOTINAMIDE [Suspect]
     Active Substance: NIACINAMIDE
  65. NUCALA [Suspect]
     Active Substance: MEPOLIZUMAB
  66. ORENCIA [Suspect]
     Active Substance: ABATACEPT
     Route: 042
  67. OXYCODONE TEREPHTHALATE [Suspect]
     Active Substance: OXYCODONE TEREPHTHALATE
  68. PHENYLEPHRINE HYDROCHLORIDE [Suspect]
     Active Substance: PHENYLEPHRINE HYDROCHLORIDE
     Route: 030
  69. PHTHALYLSULFATHIAZOLE [Suspect]
     Active Substance: PHTHALYLSULFATHIAZOLE
  70. CETIRIZINE HYDROCHLORIDE\PSEUDOEPHEDRINE HYDROCHLORIDE [Suspect]
     Active Substance: CETIRIZINE HYDROCHLORIDE\PSEUDOEPHEDRINE HYDROCHLORIDE
  71. RITUXIMAB [Suspect]
     Active Substance: RITUXIMAB
  72. SIMPONI [Suspect]
     Active Substance: GOLIMUMAB
     Route: 058
  73. VITAMIN C [Suspect]
     Active Substance: ASCORBIC ACID
  74. XELJANZ [Suspect]
     Active Substance: TOFACITINIB CITRATE

REACTIONS (2)
  - Congenital anomaly [Unknown]
  - Foetal exposure during pregnancy [Unknown]
